FAERS Safety Report 24226447 (Version 2)
Quarter: 2024Q4

REPORT INFORMATION
  Report Type: Spontaneous
  Country: FR (occurrence: FR)
  Receive Date: 20240820
  Receipt Date: 20241022
  Transmission Date: 20250114
  Serious: Yes (Disabling)
  Sender: BRISTOL-MYERS SQUIBB COMPANY
  Company Number: FR-BRISTOL-MYERS SQUIBB COMPANY-2024-129853

PATIENT
  Age: 78 Year
  Sex: Male

DRUGS (2)
  1. REBLOZYL [Suspect]
     Active Substance: LUSPATERCEPT-AAMT
     Indication: Myelodysplastic syndrome
     Dates: start: 2022, end: 202312
  2. REBLOZYL [Suspect]
     Active Substance: LUSPATERCEPT-AAMT
     Dates: start: 2022, end: 202312

REACTIONS (5)
  - Movement disorder [Unknown]
  - Fall [Unknown]
  - Condition aggravated [Unknown]
  - Fatigue [Unknown]
  - Off label use [Unknown]
